FAERS Safety Report 16911193 (Version 1)
Quarter: 2019Q4

REPORT INFORMATION
  Report Type: Spontaneous
  Country: US (occurrence: US)
  Receive Date: 20190821
  Receipt Date: 20190821
  Transmission Date: 20200122
  Serious: Yes (Disabling, Other)
  Sender: FDA-Public Use
  Company Number: None

PATIENT
  Age: 38 Year
  Sex: Female
  Weight: 80.1 kg

DRUGS (3)
  1. PENICILLIN [Concomitant]
     Active Substance: PENICILLIN
  2. CEPACOL [Suspect]
     Active Substance: BENZOCAINE
     Indication: OROPHARYNGEAL DISCOMFORT
     Dosage: ?          QUANTITY:1 TABLET(S);OTHER FREQUENCY:1 TABLETA CADA 2 P;?
     Route: 048
     Dates: start: 20190818, end: 20190819
  3. OMEPRAZOLE. [Concomitant]
     Active Substance: OMEPRAZOLE

REACTIONS (6)
  - Throat irritation [None]
  - Food intolerance [None]
  - Toothache [None]
  - Noninfective gingivitis [None]
  - Gingival pain [None]
  - Gingival discomfort [None]

NARRATIVE: CASE EVENT DATE: 201908
